FAERS Safety Report 8291318-3 (Version None)
Quarter: 2012Q2

REPORT INFORMATION
  Report Type: 
  Country: None (occurrence: None)
  Receive Date: 20120417
  Receipt Date: 20120412
  Transmission Date: 20120825
  Serious: Yes (Hospitalization)
  Sender: FDA-Public Use
  Company Number: US-GLAXOSMITHKLINE-A0796068A

PATIENT
  Age: 58 Year
  Sex: Male
  Weight: 100 kg

DRUGS (6)
  1. BAYCOL [Concomitant]
  2. AVANDIA [Suspect]
     Indication: DIABETES MELLITUS
     Dosage: 8MG PER DAY
     Route: 048
     Dates: start: 20010101, end: 20070101
  3. GLUCOTROL XL [Concomitant]
  4. ACCUPRIL [Concomitant]
  5. STARLIX [Concomitant]
  6. ALTACE [Concomitant]

REACTIONS (2)
  - MYOCARDIAL INFARCTION [None]
  - CORONARY ARTERY DISEASE [None]
